FAERS Safety Report 16211807 (Version 1)
Quarter: 2019Q2

REPORT INFORMATION
  Report Type: Spontaneous
  Country: US (occurrence: US)
  Receive Date: 20190418
  Receipt Date: 20190418
  Transmission Date: 20190711
  Serious: Yes (Other)
  Sender: FDA-Public Use
  Company Number: US-BAYER-2019-078446

PATIENT

DRUGS (1)
  1. MAGNEVIST [Suspect]
     Active Substance: GADOPENTETATE DIMEGLUMINE
     Indication: NUCLEAR MAGNETIC RESONANCE IMAGING
     Dosage: UNK

REACTIONS (14)
  - Pain [None]
  - Confusional state [None]
  - Inflammation [None]
  - Paraesthesia [None]
  - Rash generalised [None]
  - Fatigue [None]
  - Muscle spasms [None]
  - Gadolinium deposition disease [None]
  - Asthenia [None]
  - Movement disorder [None]
  - Hypoaesthesia [None]
  - Burning sensation [None]
  - Arthralgia [None]
  - Mass [None]
